FAERS Safety Report 14621552 (Version 2)
Quarter: 2018Q1

REPORT INFORMATION
  Report Type: Spontaneous
  Country: GB (occurrence: GB)
  Receive Date: 20180310
  Receipt Date: 20180317
  Transmission Date: 20180509
  Serious: Yes (Death, Other)
  Sender: FDA-Public Use
  Company Number: GB-AUROBINDO-AUR-APL-2018-012734

PATIENT
  Age: 56 Year
  Sex: Female

DRUGS (2)
  1. SPIRONOLACTONE. [Suspect]
     Active Substance: SPIRONOLACTONE
     Indication: PRODUCT USED FOR UNKNOWN INDICATION
     Dosage: UNK ()
  2. LISINOPRIL TABLET [Suspect]
     Active Substance: LISINOPRIL
     Indication: PRODUCT USED FOR UNKNOWN INDICATION
     Dosage: UNK ()
     Route: 048

REACTIONS (7)
  - Death [Fatal]
  - Circumstance or information capable of leading to medication error [Fatal]
  - Hyperkalaemia [Fatal]
  - Labelled drug-disease interaction medication error [Fatal]
  - Labelled drug-drug interaction medication error [Fatal]
  - Medication error [Fatal]
  - Drug interaction [Fatal]
